FAERS Safety Report 9702052 (Version 1)
Quarter: 2013Q4

REPORT INFORMATION
  Report Type: Spontaneous
  Country: US (occurrence: None)
  Receive Date: 20131120
  Receipt Date: 20131120
  Transmission Date: 20140711
  Serious: Yes (Disabling, Other)
  Sender: FDA-Public Use
  Company Number: None

PATIENT
  Sex: Female
  Weight: 53.52 kg

DRUGS (8)
  1. LOVASTATIN [Suspect]
     Indication: BLOOD CHOLESTEROL INCREASED
     Route: 048
     Dates: start: 2008
  2. METFORMIN [Concomitant]
  3. GLYBURIDE [Concomitant]
  4. LOVASTATIN [Concomitant]
  5. LISINOPRIL [Concomitant]
  6. DILTIAZEM [Concomitant]
  7. SPIRIVA [Concomitant]
  8. PRO-AIR [Concomitant]

REACTIONS (3)
  - Hepatic cyst [None]
  - Back pain [None]
  - Flank pain [None]
